FAERS Safety Report 6382840-5 (Version None)
Quarter: 2009Q3

REPORT INFORMATION
  Report Type: 
  Country: None (occurrence: None)
  Receive Date: 20090930
  Receipt Date: 20090916
  Transmission Date: 20100115
  Serious: Yes (Hospitalization)
  Sender: FDA-Public Use
  Company Number: FR-JNJFOC-20090907640

PATIENT
  Sex: Female

DRUGS (22)
  1. IXPRIM [Suspect]
     Route: 048
  2. IXPRIM [Suspect]
     Indication: PAIN
     Route: 048
  3. TRAMADOL HCL [Suspect]
     Indication: PAIN
     Route: 048
     Dates: start: 20071020, end: 20071023
  4. DI-ANTALVIC [Suspect]
     Indication: POLYARTHRITIS
     Route: 048
  5. BI-PROFENID [Suspect]
     Indication: PROCEDURAL PAIN
     Route: 048
  6. NEXEN [Suspect]
     Indication: POLYARTHRITIS
     Route: 048
  7. ACETAMINOPHEN [Suspect]
     Route: 042
  8. ACETAMINOPHEN [Suspect]
     Route: 042
  9. ACETAMINOPHEN [Suspect]
     Indication: PROCEDURAL PAIN
     Route: 042
  10. TAVANIC [Concomitant]
  11. BISOPROLOL FUMARATE [Concomitant]
  12. SKENAN [Concomitant]
  13. LOVENOX [Concomitant]
  14. NEFOPAM [Concomitant]
  15. ACETAMINOPHEN [Concomitant]
  16. ACETAMINOPHEN [Concomitant]
     Indication: POLYARTHRITIS
  17. DOLIPRANE [Concomitant]
     Indication: POLYARTHRITIS
  18. STILNOX [Concomitant]
     Indication: SLEEP DISORDER
  19. CEFAMANDOLE SODIUM [Concomitant]
  20. ACUPAN [Concomitant]
  21. ACUPAN [Concomitant]
  22. ACTISKENAN [Concomitant]

REACTIONS (1)
  - HEPATITIS CHOLESTATIC [None]
